FAERS Safety Report 23994667 (Version 1)
Quarter: 2024Q2

REPORT INFORMATION
  Report Type: Report from Study
  Country: CA (occurrence: CA)
  Receive Date: 20240620
  Receipt Date: 20240620
  Transmission Date: 20240716
  Serious: Yes (Hospitalization)
  Sender: FDA-Public Use
  Company Number: CA-Vifor (International) Inc.-VIT-2024-02286

PATIENT
  Sex: Female

DRUGS (2)
  1. VELTASSA [Suspect]
     Active Substance: PATIROMER
     Indication: Hyperkalaemia
     Route: 048
     Dates: start: 20230215
  2. VELTASSA [Suspect]
     Active Substance: PATIROMER
     Indication: Hyperphosphataemia
     Route: 048

REACTIONS (6)
  - Illness [Unknown]
  - Peripheral swelling [Unknown]
  - Swelling face [Unknown]
  - Diarrhoea [Unknown]
  - Intentional product use issue [Unknown]
  - Off label use [Unknown]
